FAERS Safety Report 13211031 (Version 1)
Quarter: 2017Q1

REPORT INFORMATION
  Report Type: Spontaneous
  Country: US (occurrence: US)
  Receive Date: 20170209
  Receipt Date: 20170209
  Transmission Date: 20170428
  Serious: No
  Sender: FDA-Public Use
  Company Number: US-ALLERGAN-1660629US

PATIENT
  Age: 58 Year
  Sex: Female

DRUGS (8)
  1. BOTOX COSMETIC [Suspect]
     Active Substance: ONABOTULINUMTOXINA
     Indication: SKIN WRINKLING
     Dosage: 3.75 UNITS, SINGLE
     Route: 030
     Dates: start: 20160527, end: 20160527
  2. BOTOX COSMETIC [Suspect]
     Active Substance: ONABOTULINUMTOXINA
     Dosage: 2.75 UNITS, SINGLE
     Route: 030
     Dates: start: 20160527, end: 20160527
  3. BOTOX COSMETIC [Suspect]
     Active Substance: ONABOTULINUMTOXINA
     Indication: SKIN WRINKLING
     Dosage: 3.75 UNITS, SINGLE
     Route: 030
     Dates: start: 20160527, end: 20160527
  4. BOTOX COSMETIC [Suspect]
     Active Substance: ONABOTULINUMTOXINA
     Dosage: 3.75 UNITS, SINGLE
     Route: 030
     Dates: start: 20160527, end: 20160527
  5. BOTOX COSMETIC [Suspect]
     Active Substance: ONABOTULINUMTOXINA
     Dosage: 3.75 UNITS, SINGLE
     Route: 030
     Dates: start: 20160527, end: 20160527
  6. BOTOX COSMETIC [Suspect]
     Active Substance: ONABOTULINUMTOXINA
     Dosage: 2.75 UNITS, SINGLE
     Route: 030
     Dates: start: 20160527, end: 20160527
  7. BOTOX COSMETIC [Suspect]
     Active Substance: ONABOTULINUMTOXINA
     Indication: SKIN WRINKLING
     Dosage: 3.75 UNITS, SINGLE
     Route: 030
     Dates: start: 20160527, end: 20160527
  8. BOTOX COSMETIC [Suspect]
     Active Substance: ONABOTULINUMTOXINA
     Indication: SKIN WRINKLING
     Dosage: 3.75 UNITS, SINGLE
     Route: 030
     Dates: start: 20160527, end: 20160527

REACTIONS (3)
  - Off label use [Unknown]
  - Drug ineffective [Unknown]
  - Product preparation error [Unknown]

NARRATIVE: CASE EVENT DATE: 20160527
